FAERS Safety Report 14248566 (Version 3)
Quarter: 2017Q4

REPORT INFORMATION
  Report Type: Spontaneous
  Country: RU (occurrence: RU)
  Receive Date: 20171204
  Receipt Date: 20171226
  Transmission Date: 20180321
  Serious: No
  Sender: FDA-Public Use
  Company Number: RU-AMGEN-RUSSP2017179136

PATIENT
  Age: 68 Year
  Sex: Female
  Weight: 60 kg

DRUGS (8)
  1. ANGIOVIT [Concomitant]
     Dosage: UNK
  2. SOTALOL. [Concomitant]
     Active Substance: SOTALOL
     Dosage: UNK
  3. COPLAVIX [Concomitant]
     Active Substance: ASPIRIN\CLOPIDOGREL BISULFATE
     Dosage: UNK
  4. NORVASK [Concomitant]
     Active Substance: AMLODIPINE BESYLATE
     Dosage: UNK
  5. PRESTARIUM [Concomitant]
     Active Substance: PERINDOPRIL
     Dosage: UNK
  6. WARFARIN [Concomitant]
     Active Substance: WARFARIN
     Dosage: UNK
  7. PROLIA [Suspect]
     Active Substance: DENOSUMAB
     Indication: OSTEOPOROSIS
     Dosage: UNK, Q6MO
     Route: 058
     Dates: start: 2015
  8. CA [Concomitant]
     Dosage: UNK

REACTIONS (2)
  - Back pain [Recovering/Resolving]
  - Mobility decreased [Not Recovered/Not Resolved]

NARRATIVE: CASE EVENT DATE: 20171127
